FAERS Safety Report 7794280-2 (Version None)
Quarter: 2011Q4

REPORT INFORMATION
  Report Type: 
  Country: None (occurrence: None)
  Receive Date: 20111004
  Receipt Date: 20110921
  Transmission Date: 20120403
  Serious: Yes (Other)
  Sender: FDA-Public Use
  Company Number: US-BAYER-2011-007389

PATIENT
  Age: 27 Year
  Sex: Female
  Weight: 52.154 kg

DRUGS (5)
  1. NIFEDIPINE [Concomitant]
     Route: 048
  2. DROSPIRENONE AND ETHINYL ESTRADIOL [Suspect]
     Dosage: UNK
     Dates: start: 20081231, end: 20090101
  3. YASMIN [Suspect]
     Dosage: UNK
     Dates: start: 20070707, end: 20080101
  4. YASMIN [Suspect]
     Dosage: UNK
     Dates: start: 20030612, end: 20040801
  5. YASMIN [Suspect]
     Dosage: UNK
     Dates: start: 20060725, end: 20061101

REACTIONS (10)
  - DYSPEPSIA [None]
  - IRRITABLE BOWEL SYNDROME [None]
  - DIARRHOEA [None]
  - ABDOMINAL PAIN [None]
  - CHOLECYSTITIS CHRONIC [None]
  - CHOLELITHIASIS [None]
  - INJURY [None]
  - PAIN [None]
  - ABDOMINAL PAIN UPPER [None]
  - ABDOMINAL DISCOMFORT [None]
